FAERS Safety Report 10135873 (Version 1)
Quarter: 2014Q2

REPORT INFORMATION
  Report Type: Report from Study
  Country: AT (occurrence: AT)
  Receive Date: 20140429
  Receipt Date: 20140429
  Transmission Date: 20141212
  Serious: Yes (Life-Threatening, Hospitalization)
  Sender: FDA-Public Use
  Company Number: AT-ROCHE-1379295

PATIENT
  Age: 5 Month
  Sex: Male
  Weight: 110 kg

DRUGS (8)
  1. PEG-INTERFERON ALFA 2A [Suspect]
     Indication: HEPATITIS C
     Route: 058
     Dates: start: 20100215, end: 20110210
  2. RIBAVIRIN [Suspect]
     Indication: HEPATITIS C
     Route: 048
     Dates: start: 20100215, end: 20110210
  3. DAFLON [Concomitant]
  4. PANTOLOC [Concomitant]
  5. XENICAL [Concomitant]
     Route: 065
  6. LYRICA [Concomitant]
  7. HALCION [Concomitant]
  8. EUTHYROX [Concomitant]

REACTIONS (6)
  - Dyspnoea [Unknown]
  - Pruritus [Unknown]
  - Dizziness [Unknown]
  - Sleep disorder [Unknown]
  - Paraesthesia [Unknown]
  - Weight decreased [Unknown]
